FAERS Safety Report 18130402 (Version 5)
Quarter: 2024Q2

REPORT INFORMATION
  Report Type: Spontaneous
  Country: FI (occurrence: FI)
  Receive Date: 20200810
  Receipt Date: 20240405
  Transmission Date: 20240716
  Serious: Yes (Other)
  Sender: FDA-Public Use
  Company Number: FI-MYLANLABS-2019M1082031

PATIENT
  Age: 34 Year
  Sex: Male

DRUGS (42)
  1. CANDESARTAN [Interacting]
     Active Substance: CANDESARTAN
     Indication: Prophylaxis
     Dosage: 16 MILLIGRAM, QD
     Route: 065
     Dates: start: 2017
  2. CANDESARTAN [Interacting]
     Active Substance: CANDESARTAN
     Indication: Behaviour disorder
     Dosage: 16 MILLIGRAM, QD
     Route: 065
  3. QUETIAPINE [Interacting]
     Active Substance: QUETIAPINE
     Indication: Mental disorder
     Dosage: UNK
     Route: 065
  4. QUETIAPINE [Interacting]
     Active Substance: QUETIAPINE
     Indication: Autism spectrum disorder
  5. QUETIAPINE [Interacting]
     Active Substance: QUETIAPINE
     Indication: Behaviour disorder
  6. METOPROLOL [Interacting]
     Active Substance: METOPROLOL
     Indication: Migraine prophylaxis
     Dosage: UNK
     Route: 065
  7. METOPROLOL [Interacting]
     Active Substance: METOPROLOL
     Indication: Behaviour disorder
  8. OXCARBAZEPINE [Interacting]
     Active Substance: OXCARBAZEPINE
     Indication: Seizure
     Dosage: 900 MILLIGRAM, QD
     Route: 065
  9. CARBAMAZEPINE [Interacting]
     Active Substance: CARBAMAZEPINE
     Indication: Seizure
     Dosage: UNK
     Route: 065
  10. CARBAMAZEPINE [Interacting]
     Active Substance: CARBAMAZEPINE
     Indication: Behaviour disorder
  11. CITALOPRAM [Interacting]
     Active Substance: CITALOPRAM\CITALOPRAM HYDROBROMIDE
     Indication: Autism spectrum disorder
     Dosage: UNK
     Route: 065
  12. CITALOPRAM [Interacting]
     Active Substance: CITALOPRAM\CITALOPRAM HYDROBROMIDE
     Indication: Mental disorder
  13. CITALOPRAM [Interacting]
     Active Substance: CITALOPRAM\CITALOPRAM HYDROBROMIDE
     Indication: Behaviour disorder
  14. RISPERIDONE [Interacting]
     Active Substance: RISPERIDONE
     Indication: Autism spectrum disorder
     Dosage: 4 MILLIGRAM, QD
     Route: 065
     Dates: start: 2017
  15. RISPERIDONE [Interacting]
     Active Substance: RISPERIDONE
     Indication: Mental disorder
     Dosage: 3 MILLIGRAM, QD
     Route: 065
  16. RISPERIDONE [Interacting]
     Active Substance: RISPERIDONE
     Indication: Behaviour disorder
  17. BISOPROLOL [Interacting]
     Active Substance: BISOPROLOL\BISOPROLOL FUMARATE
     Indication: Behaviour disorder
     Dosage: UNK
     Route: 065
  18. BISOPROLOL [Interacting]
     Active Substance: BISOPROLOL\BISOPROLOL FUMARATE
     Dosage: UNK
     Route: 065
  19. ESCITALOPRAM [Interacting]
     Active Substance: ESCITALOPRAM OXALATE
     Indication: Autism spectrum disorder
     Dosage: 10 MILLIGRAM, QD
     Route: 065
     Dates: start: 2017
  20. ESCITALOPRAM [Interacting]
     Active Substance: ESCITALOPRAM OXALATE
     Indication: Behaviour disorder
     Dosage: 10 MILLIGRAM, QD
     Route: 065
  21. ESCITALOPRAM [Interacting]
     Active Substance: ESCITALOPRAM OXALATE
     Indication: Mental disorder
  22. TOPIRAMATE [Interacting]
     Active Substance: TOPIRAMATE
     Indication: Prophylaxis
     Dosage: UNK
     Route: 065
     Dates: start: 2015
  23. TOPIRAMATE [Interacting]
     Active Substance: TOPIRAMATE
     Indication: Behaviour disorder
  24. OLANZAPINE [Suspect]
     Active Substance: OLANZAPINE
     Indication: Mental disorder
     Dosage: 10 MILLIGRAM, QD
     Route: 065
     Dates: start: 2017
  25. OLANZAPINE [Suspect]
     Active Substance: OLANZAPINE
     Indication: Autism spectrum disorder
     Dosage: 10 MILLIGRAM, QD
     Route: 065
  26. OLANZAPINE [Suspect]
     Active Substance: OLANZAPINE
     Indication: Behaviour disorder
  27. AMITRIPTYLINE [Interacting]
     Active Substance: AMITRIPTYLINE
     Indication: Autism spectrum disorder
     Dosage: UNK
     Route: 065
  28. AMITRIPTYLINE [Interacting]
     Active Substance: AMITRIPTYLINE
     Indication: Mental disorder
  29. VALPROATE SODIUM [Interacting]
     Active Substance: VALPROATE SODIUM
     Indication: Migraine prophylaxis
     Dosage: 1200 MILLIGRAM, QD
     Route: 065
  30. VALPROATE SODIUM [Interacting]
     Active Substance: VALPROATE SODIUM
     Indication: Seizure
  31. VALPROATE SODIUM [Interacting]
     Active Substance: VALPROATE SODIUM
     Indication: Affective disorder
  32. POLYETHYLENE GLYCOL 3350 [Interacting]
     Active Substance: POLYETHYLENE GLYCOL 3350
     Indication: Behaviour disorder
     Dosage: 3 DOSAGE FORM, QD (3 SACHETS PER DAY/ 3 BAGS PER DAY)
     Route: 065
  33. LORAZEPAM [Suspect]
     Active Substance: LORAZEPAM
     Indication: Mental disorder
     Dosage: 3 MILLIGRAM, QD
     Route: 065
     Dates: start: 2017
  34. LORAZEPAM [Suspect]
     Active Substance: LORAZEPAM
     Indication: Autism spectrum disorder
     Dosage: 3 MILLIGRAM, QD
     Route: 065
  35. LORAZEPAM [Suspect]
     Active Substance: LORAZEPAM
     Indication: Behaviour disorder
  36. LEVOMEPROMAZINE [Suspect]
     Active Substance: LEVOMEPROMAZINE
     Indication: Mental disorder
     Dosage: 100 MILLIGRAM, QD
     Route: 065
     Dates: start: 2017
  37. LEVOMEPROMAZINE [Suspect]
     Active Substance: LEVOMEPROMAZINE
     Indication: Autism spectrum disorder
     Dosage: 100 MILLIGRAM, QD
     Route: 065
  38. LEVOMEPROMAZINE [Suspect]
     Active Substance: LEVOMEPROMAZINE
     Indication: Behaviour disorder
  39. MELATONIN [Suspect]
     Active Substance: MELATONIN
     Indication: Behaviour disorder
     Dosage: 3 MILLIGRAM, QD
     Route: 065
     Dates: start: 2017
  40. MELATONIN [Suspect]
     Active Substance: MELATONIN
     Dosage: 3 MILLIGRAM, QD
     Route: 065
  41. PANTOPRAZOLE SODIUM [Suspect]
     Active Substance: PANTOPRAZOLE SODIUM
     Indication: Behaviour disorder
     Dosage: 20 MILLIGRAM, QD
     Route: 065
     Dates: start: 2017
  42. PANTOPRAZOLE SODIUM [Suspect]
     Active Substance: PANTOPRAZOLE SODIUM
     Dosage: 20 MILLIGRAM, QD
     Route: 065

REACTIONS (11)
  - Behaviour disorder [Unknown]
  - Aggression [Not Recovered/Not Resolved]
  - Self-destructive behaviour [Not Recovered/Not Resolved]
  - Drug ineffective for unapproved indication [Not Recovered/Not Resolved]
  - Intentional product use issue [Not Recovered/Not Resolved]
  - Condition aggravated [Unknown]
  - Drug ineffective [Unknown]
  - Product use in unapproved indication [Unknown]
  - Off label use [Unknown]
  - Drug interaction [Unknown]
  - Medication error [Unknown]

NARRATIVE: CASE EVENT DATE: 20150101
